FAERS Safety Report 7287681-2 (Version None)
Quarter: 2011Q1

REPORT INFORMATION
  Report Type: 
  Country: None (occurrence: None)
  Receive Date: 20110211
  Receipt Date: 20110131
  Transmission Date: 20110831
  Serious: Yes (Other)
  Sender: FDA-Public Use
  Company Number: BR-ELI_LILLY_AND_COMPANY-BR201012003624

PATIENT
  Age: 59 Year
  Sex: Female
  Weight: 70 kg

DRUGS (9)
  1. HUMALOG MIX 75/25 [Suspect]
     Dosage: UNK, OTHER
     Route: 058
  2. LYRICA [Concomitant]
     Indication: PAIN IN EXTREMITY
     Dosage: UNK, 4/D
     Route: 048
     Dates: start: 20090101
  3. METFORMIN HCL [Concomitant]
     Dosage: 500 MG, DAILY (1/D)
     Route: 048
     Dates: start: 19950101
  4. SINVASTATINA [Concomitant]
     Dosage: 200 MG, DAILY (1/D)
     Route: 048
  5. HUMALOG MIX 75/25 [Suspect]
     Indication: TYPE 2 DIABETES MELLITUS
     Dosage: 22 IU, EACH MORNING
     Route: 058
  6. AAS [Concomitant]
     Dosage: 20 MG, DAILY (1/D)
     Route: 048
  7. METOPROLOL TARTRATE [Concomitant]
     Dosage: 500 MG, DAILY (1/D)
     Route: 048
     Dates: start: 20101001
  8. HUMALOG MIX 50/50 [Suspect]
     Indication: TYPE 2 DIABETES MELLITUS
     Dosage: UNK, EACH EVENING
     Route: 058
  9. JANUMET [Concomitant]
     Dosage: UNK, 2/D
     Route: 048

REACTIONS (8)
  - HYPERHIDROSIS [None]
  - HYPOTENSION [None]
  - VISUAL IMPAIRMENT [None]
  - SUFFOCATION FEELING [None]
  - FEELING ABNORMAL [None]
  - HYPERGLYCAEMIA [None]
  - SYNCOPE [None]
  - HYPOGLYCAEMIA [None]
